APPROVED DRUG PRODUCT: ADENOSINE
Active Ingredient: ADENOSINE
Strength: 60MG/20ML (3MG/ML)
Dosage Form/Route: SOLUTION;INTRAVENOUS
Application: A077425 | Product #001 | TE Code: AP
Applicant: MEITHEAL PHARMACEUTICALS INC
Approved: Aug 29, 2013 | RLD: No | RS: Yes | Type: RX